FAERS Safety Report 8078390-0 (Version None)
Quarter: 2012Q1

REPORT INFORMATION
  Report Type: 
  Country: None (occurrence: None)
  Receive Date: 20120127
  Receipt Date: 20110331
  Transmission Date: 20120608
  Serious: No
  Sender: FDA-Public Use
  Company Number: US-ABBOTT-10P-163-0673112-00

PATIENT
  Sex: Female

DRUGS (6)
  1. ORTHO TRI-CYCLEN [Concomitant]
     Indication: CONTRACEPTION
     Dosage: PILL
  2. SEASONIQUE [Concomitant]
  3. HUMIRA [Suspect]
     Indication: ANKYLOSING SPONDYLITIS
     Dates: start: 20100801, end: 20110101
  4. HUMIRA [Suspect]
  5. INDOMETHACIN [Concomitant]
     Indication: ANKYLOSING SPONDYLITIS
  6. ORTHONOVA [Concomitant]
     Dates: start: 20110101

REACTIONS (6)
  - HYPERHIDROSIS [None]
  - ERYTHEMA [None]
  - PAPULE [None]
  - HOT FLUSH [None]
  - PAIN [None]
  - PRURITUS [None]
